FAERS Safety Report 8602983-2 (Version None)
Quarter: 2012Q3

REPORT INFORMATION
  Report Type: 
  Country: None (occurrence: None)
  Receive Date: 20120817
  Receipt Date: 20120515
  Transmission Date: 20120928
  Serious: No
  Sender: FDA-Public Use
  Company Number: US-GLAXOSMITHKLINE-A0966437A

PATIENT
  Age: 66 Year
  Sex: Male
  Weight: 81.8 kg

DRUGS (1)
  1. VOTRIENT [Suspect]
     Indication: RENAL CANCER
     Dosage: 800MG PER DAY
     Route: 048
     Dates: start: 20120205, end: 20120313

REACTIONS (5)
  - BALANCE DISORDER [None]
  - NONSPECIFIC REACTION [None]
  - FATIGUE [None]
  - ASTHENIA [None]
  - DIZZINESS [None]
